FAERS Safety Report 21706046 (Version 4)
Quarter: 2023Q1

REPORT INFORMATION
  Report Type: Report from Study
  Country: US (occurrence: US)
  Receive Date: 20221209
  Receipt Date: 20230202
  Transmission Date: 20230418
  Serious: No
  Sender: FDA-Public Use
  Company Number: US-002147023-NVSC2022US284245

PATIENT
  Sex: Female

DRUGS (2)
  1. PIQRAY [Suspect]
     Active Substance: ALPELISIB
     Indication: Breast cancer
     Dosage: 300 MG, QD
     Route: 048
     Dates: start: 20221117, end: 20221202
  2. PIQRAY [Suspect]
     Active Substance: ALPELISIB
     Dosage: 300 MG, QD
     Route: 048

REACTIONS (8)
  - Hyperglycaemia [Recovered/Resolved]
  - Dry mouth [Recovered/Resolved]
  - Decreased appetite [Recovered/Resolved]
  - Decreased appetite [Recovering/Resolving]
  - Thirst [Recovered/Resolved]
  - Weight decreased [Not Recovered/Not Resolved]
  - Urinary tract infection [Recovered/Resolved]
  - Rash [Recovered/Resolved]
